FAERS Safety Report 10486742 (Version 1)
Quarter: 2014Q3

REPORT INFORMATION
  Report Type: Spontaneous
  Country: DE (occurrence: None)
  Receive Date: 20140929
  Receipt Date: 20140929
  Transmission Date: 20150326
  Serious: Yes (Other)
  Sender: FDA-Public Use
  Company Number: 2014DE003722

PATIENT
  Age: 43 Year
  Sex: Male

DRUGS (1)
  1. ICLUSIG [Suspect]
     Active Substance: PONATINIB
     Indication: GASTROINTESTINAL STROMAL TUMOUR
     Dosage: 45 MG, UNK
     Dates: end: 201409

REACTIONS (2)
  - Cerebrovascular accident [None]
  - Off label use [None]

NARRATIVE: CASE EVENT DATE: 201409
